FAERS Safety Report 8152249-2 (Version None)
Quarter: 2012Q1

REPORT INFORMATION
  Report Type: 
  Country: None (occurrence: None)
  Receive Date: 20120221
  Receipt Date: 20120208
  Transmission Date: 20120608
  Serious: Yes (Other)
  Sender: FDA-Public Use
  Company Number: JP-SANOFI-AVENTIS-2012SA009022

PATIENT

DRUGS (3)
  1. AMARYL [Suspect]
     Dosage: IT WAS UNKNOWN WHETHER THIS IS A TABLET OR OD TABLET
     Route: 065
  2. DABIGATRAN ETEXILATE [Concomitant]
  3. KREMEZIN [Concomitant]

REACTIONS (1)
  - MELAENA [None]
